FAERS Safety Report 4642452-8 (Version None)
Quarter: 2005Q2

REPORT INFORMATION
  Report Type: 
  Country: None (occurrence: None)
  Receive Date: 20050420
  Receipt Date: 20050420
  Transmission Date: 20051028
  Serious: No
  Sender: FDA-Public Use
  Company Number: None

PATIENT
  Sex: Male
  Weight: 105 kg

DRUGS (2)
  1. CISPLATIN [Suspect]
     Dosage: 100MG/M2 ON DAYS 1,22 AND 43
     Dates: start: 20050223
  2. RADIATION [Suspect]

REACTIONS (9)
  - CANDIDIASIS [None]
  - DEHYDRATION [None]
  - DERMATITIS [None]
  - ELECTROLYTE IMBALANCE [None]
  - FATIGUE [None]
  - HYPOKALAEMIA [None]
  - MUCOSAL INFLAMMATION [None]
  - PHARYNGOLARYNGEAL PAIN [None]
  - RADIATION DYSPHAGIA [None]
